FAERS Safety Report 7503094-X (Version None)
Quarter: 2011Q2

REPORT INFORMATION
  Report Type: 
  Country: None (occurrence: None)
  Receive Date: 20110525
  Receipt Date: 20101018
  Transmission Date: 20111010
  Serious: No
  Sender: FDA-Public Use
  Company Number: US-NOVEN-ALL1-2010-05421

PATIENT
  Age: 11 Year
  Sex: Male
  Weight: 50.34 kg

DRUGS (3)
  1. DAYTRANA [Suspect]
     Dosage: 30 MG, 1X/DAY:QD
     Route: 062
     Dates: start: 20100501
  2. DAYTRANA [Suspect]
     Dosage: UNK, 1X/DAY:QD
     Route: 062
     Dates: start: 20080101
  3. DAYTRANA [Suspect]
     Dosage: 20 MG, 1X/DAY:QD
     Route: 062
     Dates: end: 20100501

REACTIONS (2)
  - DRUG EFFECT DELAYED [None]
  - DRUG EFFECT DECREASED [None]
